FAERS Safety Report 7413066 (Version 5)
Quarter: 2013Q4

REPORT INFORMATION
  Report Type: Report from Study
  Country: FR (occurrence: FR)
  Receive Date: 20100608
  Receipt Date: 20131210
  Transmission Date: 20140711
  Serious: Yes (Other)
  Sender: FDA-Public Use
  Company Number: PHHY2010FR35993

PATIENT
  Age: 42 Year
  Sex: Female

DRUGS (3)
  1. EXTAVIA [Suspect]
     Indication: CLINICALLY ISOLATED SYNDROME
     Dosage: 1 MG, QOD
     Route: 058
     Dates: start: 20100423
  2. DOLIPRANE [Concomitant]
  3. SEROPLEX [Concomitant]
     Indication: DEPRESSION
     Dosage: UNK UKN, UNK
     Dates: start: 2012

REACTIONS (13)
  - Aphonia [Recovered/Resolved]
  - Multiple sclerosis relapse [Unknown]
  - Burning sensation [Unknown]
  - Fatigue [Unknown]
  - Injection site mass [Recovered/Resolved]
  - Injection site pain [Not Recovered/Not Resolved]
  - Injection site erythema [Recovered/Resolved]
  - Injection site swelling [Not Recovered/Not Resolved]
  - Injection site haematoma [Recovered/Resolved]
  - Injection site haemorrhage [Unknown]
  - Pyrexia [Unknown]
  - Injection site induration [Not Recovered/Not Resolved]
  - Injection site pruritus [Not Recovered/Not Resolved]
